FAERS Safety Report 7070587-1 (Version None)
Quarter: 2010Q4

REPORT INFORMATION
  Report Type: 
  Country: None (occurrence: None)
  Receive Date: 20101029
  Receipt Date: 20101022
  Transmission Date: 20110411
  Serious: Yes (Life-Threatening, Hospitalization, Other)
  Sender: FDA-Public Use
  Company Number: JP-PFIZER INC-2010132708

PATIENT
  Age: 81 Year
  Sex: Female
  Weight: 46 kg

DRUGS (2)
  1. SULPERAZON [Suspect]
     Indication: CHOLECYSTITIS
     Dosage: 1 G, 2X/DAY
     Route: 041
     Dates: start: 20090826, end: 20090908
  2. AMLODIPINE [Concomitant]
     Indication: HYPERTENSION
     Dosage: 5 MG, 1X/DAY
     Route: 048

REACTIONS (2)
  - CHOLECYSTITIS [None]
  - HAEMORRHAGE [None]
